FAERS Safety Report 18509100 (Version 2)
Quarter: 2025Q2

REPORT INFORMATION
  Report Type: Spontaneous
  Country: PL (occurrence: PL)
  Receive Date: 20201117
  Receipt Date: 20250629
  Transmission Date: 20250716
  Serious: Yes (Death, Life-Threatening, Other)
  Sender: AUROBINDO
  Company Number: PL-LEKAM-2020-26-NOBAXIN

PATIENT
  Age: 89 Year

DRUGS (6)
  1. AZITHROMYCIN [Suspect]
     Active Substance: AZITHROMYCIN
     Indication: Acute respiratory distress syndrome
     Route: 065
  2. MEROPENEM [Suspect]
     Active Substance: MEROPENEM
     Indication: Acute respiratory distress syndrome
     Route: 065
  3. HYDROXYCHLOROQUINE [Suspect]
     Active Substance: HYDROXYCHLOROQUINE
     Indication: Acute respiratory distress syndrome
     Route: 065
  4. EPINEPHRINE [Concomitant]
     Active Substance: EPINEPHRINE
     Indication: Product used for unknown indication
     Route: 065
  5. DOBUTAMINE [Concomitant]
     Active Substance: DOBUTAMINE HYDROCHLORIDE
     Indication: Product used for unknown indication
     Route: 065
  6. NOREPINEPHRINE [Concomitant]
     Active Substance: NOREPINEPHRINE
     Indication: Product used for unknown indication
     Route: 065

REACTIONS (5)
  - Acid-base balance disorder mixed [Fatal]
  - Acute respiratory distress syndrome [Fatal]
  - Anuria [Fatal]
  - Drug ineffective [Fatal]
  - Off label use [Fatal]
